FAERS Safety Report 5103620-4 (Version None)
Quarter: 2006Q3

REPORT INFORMATION
  Report Type: 
  Country: None (occurrence: None)
  Receive Date: 20060911
  Receipt Date: 20060911
  Transmission Date: 20061208
  Serious: Yes (Other)
  Sender: FDA-Public Use
  Company Number: None

PATIENT
  Age: 10 Year
  Sex: Male
  Weight: 32.7 kg

DRUGS (3)
  1. BLEOMYCIN [Suspect]
     Indication: HODGKIN'S DISEASE
     Dosage: 5.75 UNITS    ONCE   IV BOLUS
     Route: 040
     Dates: start: 20060609, end: 20060609
  2. DOXORUBICIN [Concomitant]
  3. PREDNISONE TAB [Concomitant]

REACTIONS (1)
  - CHILLS [None]
